FAERS Safety Report 4465762-6 (Version None)
Quarter: 2004Q4

REPORT INFORMATION
  Report Type: 
  Country: None (occurrence: None)
  Receive Date: 20041001
  Receipt Date: 20040917
  Transmission Date: 20050328
  Serious: Yes (Hospitalization, Other)
  Sender: FDA-Public Use
  Company Number: 8901

PATIENT
  Age: 79 Year
  Sex: Male
  Weight: 62.5 kg

DRUGS (4)
  1. VINCRISTINE [Suspect]
     Indication: SMALL CELL LUNG CANCER STAGE UNSPECIFIED
     Dosage: 1.3 MG/M2 IV
     Route: 042
     Dates: start: 20040825, end: 20040825
  2. ETOPOSIDE [Concomitant]
  3. DEXAMETHASONE [Concomitant]
  4. METOCLOPRAMIDE [Concomitant]

REACTIONS (3)
  - DYSPNOEA [None]
  - MYOCARDIAL INFARCTION [None]
  - PHARYNX DISCOMFORT [None]
